FAERS Safety Report 5001659-0 (Version None)
Quarter: 2006Q2

REPORT INFORMATION
  Report Type: 
  Country: None (occurrence: None)
  Receive Date: 20060511
  Receipt Date: 20060511
  Transmission Date: 20061013
  Serious: Yes (Hospitalization)
  Sender: FDA-Public Use
  Company Number: None

PATIENT
  Age: 50 Year
  Sex: Male

DRUGS (7)
  1. GLEEVEC [Suspect]
     Indication: GLIOBLASTOMA MULTIFORME
     Dosage: 500 MG  PO  BID
     Route: 048
     Dates: start: 20060105
  2. HYDROXYUREA [Suspect]
     Indication: GLIOBLASTOMA MULTIFORME
     Dosage: 500 MG  PO  BID
     Route: 048
     Dates: start: 20060105
  3. PTK/ZK [Suspect]
     Indication: GLIOBLASTOMA MULTIFORME
     Dosage: 750 MG  PO  BID
     Route: 048
     Dates: start: 20060105
  4. TEGRETOL [Concomitant]
  5. DECADRON SRC [Concomitant]
  6. ZANTAC [Concomitant]
  7. ENALOPRIL [Concomitant]

REACTIONS (12)
  - BACTERIAL INFECTION [None]
  - BALANCE DISORDER [None]
  - BLOOD CULTURE POSITIVE [None]
  - CSF PROTEIN INCREASED [None]
  - DEVICE MALFUNCTION [None]
  - DIZZINESS [None]
  - HEADACHE [None]
  - MALIGNANT NEOPLASM PROGRESSION [None]
  - MENTAL STATUS CHANGES [None]
  - PYREXIA [None]
  - RASH [None]
  - WHITE BLOOD CELL COUNT INCREASED [None]
